FAERS Safety Report 19063224 (Version 1)
Quarter: 2021Q1

REPORT INFORMATION
  Report Type: Spontaneous
  Country: US (occurrence: US)
  Receive Date: 20210326
  Receipt Date: 20210326
  Transmission Date: 20210420
  Serious: Yes (Other)
  Sender: FDA-Public Use
  Company Number: None

PATIENT
  Age: 25 Year
  Sex: Female
  Weight: 99 kg

DRUGS (4)
  1. GAMUNEX?C [Suspect]
     Active Substance: HUMAN IMMUNOGLOBULIN G
     Indication: POLYMYOSITIS
     Dosage: ?          OTHER FREQUENCY:2 DAYS Q4W;?
     Route: 042
     Dates: start: 20210325, end: 20210326
  2. DIPHENHYDRAMINE 25 MG IV PUSH [Concomitant]
     Dates: start: 20210325, end: 20210326
  3. ACETAMINOPHEN 325 MG PO [Concomitant]
     Dates: start: 20210325, end: 20210326
  4. SODIUM CHLORIDE 0.9% 1000 ML [Concomitant]
     Dates: start: 20210325, end: 20210326

REACTIONS (5)
  - Oxygen saturation decreased [None]
  - Rhinorrhoea [None]
  - Infusion related reaction [None]
  - Cough [None]
  - Lacrimation increased [None]

NARRATIVE: CASE EVENT DATE: 20210326
